FAERS Safety Report 16042715 (Version 1)
Quarter: 2019Q1

REPORT INFORMATION
  Report Type: Spontaneous
  Country: CA (occurrence: CA)
  Receive Date: 20190306
  Receipt Date: 20190306
  Transmission Date: 20190418
  Serious: No
  Sender: FDA-Public Use
  Company Number: CA-JAZZ-2019-CA-002106

PATIENT

DRUGS (14)
  1. XYREM [Suspect]
     Active Substance: SODIUM OXYBATE
     Dosage: 3 G,
     Route: 048
  2. XYREM [Suspect]
     Active Substance: SODIUM OXYBATE
     Indication: CATAPLEXY
     Dosage: 3 G,
     Route: 048
  3. XYREM [Suspect]
     Active Substance: SODIUM OXYBATE
     Dosage: 3.75 G
     Route: 048
  4. XYREM [Suspect]
     Active Substance: SODIUM OXYBATE
     Dosage: 4.5 G,
     Route: 048
  5. BISOPROLOL [Concomitant]
     Active Substance: BISOPROLOL
  6. ADDERALL [Suspect]
     Active Substance: AMPHETAMINE ASPARTATE\AMPHETAMINE SULFATE\DEXTROAMPHETAMINE SACCHARATE\DEXTROAMPHETAMINE SULFATE
     Indication: PRODUCT USED FOR UNKNOWN INDICATION
  7. XYREM [Suspect]
     Active Substance: SODIUM OXYBATE
     Dosage: 1 G,
     Route: 048
  8. XYREM [Suspect]
     Active Substance: SODIUM OXYBATE
     Dosage: 4.5 G,
     Route: 048
  9. XYREM [Suspect]
     Active Substance: SODIUM OXYBATE
     Dosage: 2.25 G
     Route: 048
  10. XYREM [Suspect]
     Active Substance: SODIUM OXYBATE
     Dosage: 4.5 G,
     Route: 048
  11. XYREM [Suspect]
     Active Substance: SODIUM OXYBATE
     Dosage: 2.25 G,
     Route: 048
  12. XYREM [Suspect]
     Active Substance: SODIUM OXYBATE
     Dosage: 4.5 G,
     Route: 048
  13. XYREM [Suspect]
     Active Substance: SODIUM OXYBATE
     Dosage: 3 G,
     Route: 048
  14. ONDANSETRON [Concomitant]
     Active Substance: ONDANSETRON

REACTIONS (4)
  - Drug ineffective [Unknown]
  - Nausea [Unknown]
  - Dizziness [Unknown]
  - Vertigo [Unknown]
